FAERS Safety Report 11769185 (Version 1)
Quarter: 2015Q4

REPORT INFORMATION
  Report Type: Spontaneous
  Country: US (occurrence: US)
  Receive Date: 20151123
  Receipt Date: 20151123
  Transmission Date: 20160304
  Serious: No
  Sender: FDA-Public Use
  Company Number: US-ROCHE-1011002

PATIENT
  Sex: Female

DRUGS (12)
  1. VITAMIN D [Concomitant]
     Active Substance: CHOLECALCIFEROL
  2. PEGASYS [Suspect]
     Active Substance: PEGINTERFERON ALFA-2A
     Indication: POLYCYTHAEMIA VERA
     Route: 058
     Dates: start: 20110401
  3. ASPIRIN. [Concomitant]
     Active Substance: ASPIRIN
     Route: 065
  4. PEGASYS [Suspect]
     Active Substance: PEGINTERFERON ALFA-2A
     Route: 065
  5. PEGASYS [Suspect]
     Active Substance: PEGINTERFERON ALFA-2A
     Route: 065
  6. CALCIUM [Concomitant]
     Active Substance: CALCIUM
  7. PEGASYS [Suspect]
     Active Substance: PEGINTERFERON ALFA-2A
     Route: 065
  8. MULTIVITAMIN [Concomitant]
     Active Substance: VITAMINS
  9. ZOLOFT [Concomitant]
     Active Substance: SERTRALINE HYDROCHLORIDE
     Route: 048
  10. ANTACIDS LIQUID [Concomitant]
  11. BIOTIN [Concomitant]
     Active Substance: BIOTIN
  12. SYNTHROID [Concomitant]
     Active Substance: LEVOTHYROXINE SODIUM
     Route: 048

REACTIONS (11)
  - Fatigue [Not Recovered/Not Resolved]
  - White blood cell count increased [Unknown]
  - Injection site erythema [Recovered/Resolved]
  - Pyrexia [Unknown]
  - Alopecia [Unknown]
  - White blood cell count decreased [Unknown]
  - Platelet count decreased [Unknown]
  - Onychoclasis [Unknown]
  - Ulcer [Unknown]
  - Alopecia [Not Recovered/Not Resolved]
  - Thyroid disorder [Unknown]
